FAERS Safety Report 20672995 (Version 1)
Quarter: 2022Q2

REPORT INFORMATION
  Report Type: Spontaneous
  Country: DE (occurrence: DE)
  Receive Date: 20220405
  Receipt Date: 20220405
  Transmission Date: 20220721
  Serious: Yes (Other)
  Sender: FDA-Public Use
  Company Number: DE-MYLANLABS-2022M1024774

PATIENT
  Age: 30 Year
  Sex: Male
  Weight: 67 kg

DRUGS (6)
  1. TRASTUZUMAB [Suspect]
     Active Substance: TRASTUZUMAB
     Indication: Adenocarcinoma gastric
     Dosage: 4 MILLIGRAM/KILOGRAM, CYCLE(TREATMENT GIVEN IN 6 CYCLE)
     Route: 065
  2. FLUOROURACIL [Suspect]
     Active Substance: FLUOROURACIL
     Indication: Adenocarcinoma gastric
     Dosage: 2400 MILLIGRAM/SQ. METER, CYCLE(TREATMENT GIVEN IN 6 CYCLE)
     Route: 042
  3. LEUCOVORIN [Suspect]
     Active Substance: LEUCOVORIN
     Indication: Adenocarcinoma gastric
     Dosage: 200 MILLIGRAM/SQ. METER, CYCLE(TREATMENT GIVEN IN 6 CYCLE)
     Route: 065
  4. DOCETAXEL [Suspect]
     Active Substance: DOCETAXEL
     Indication: Adenocarcinoma gastric
     Dosage: 50 MILLIGRAM/SQ. METER, BIWEEKLY; TREATMENT GIVEN IN 6 CYCLE
     Route: 065
  5. OXALIPLATIN [Suspect]
     Active Substance: OXALIPLATIN
     Indication: Adenocarcinoma gastric
     Dosage: 85 MILLIGRAM/SQ. METER, CYCLE(TREATMENT GIVEN IN 6 CYCLE)
     Route: 065
  6. RASBURICASE [Suspect]
     Active Substance: RASBURICASE
     Indication: Product used for unknown indication
     Dosage: UNK
     Route: 065

REACTIONS (7)
  - Skin reaction [Unknown]
  - Hepatic function abnormal [Unknown]
  - Onycholysis [Unknown]
  - Paronychia [Unknown]
  - Ascites [Recovered/Resolved]
  - Pleural effusion [Recovered/Resolved]
  - Haematotoxicity [Unknown]
